FAERS Safety Report 8068780-4 (Version None)
Quarter: 2012Q1

REPORT INFORMATION
  Report Type: 
  Country: None (occurrence: None)
  Receive Date: 20120124
  Receipt Date: 20120113
  Transmission Date: 20120608
  Serious: Yes (Hospitalization, Other)
  Sender: FDA-Public Use
  Company Number: US-BAXTER-2010BH010301

PATIENT
  Age: 56 Year
  Sex: Male
  Weight: 124 kg

DRUGS (19)
  1. HEPARIN SODIUM INJECTION [Suspect]
     Indication: DEEP VEIN THROMBOSIS
     Route: 058
     Dates: start: 20080126
  2. FLORINEF [Concomitant]
     Indication: PRODUCT USED FOR UNKNOWN INDICATION
     Route: 065
  3. POTASSIUM CHLORIDE [Concomitant]
     Indication: PRODUCT USED FOR UNKNOWN INDICATION
     Route: 065
  4. FOLIC ACID [Concomitant]
     Indication: PRODUCT USED FOR UNKNOWN INDICATION
     Route: 065
  5. HEPARIN SODIUM INJECTION [Suspect]
     Route: 058
     Dates: start: 20110306, end: 20110311
  6. HYDROCORTISONE [Concomitant]
     Indication: PRODUCT USED FOR UNKNOWN INDICATION
     Route: 065
  7. INSULIN [Concomitant]
     Indication: DIABETES MELLITUS
     Route: 065
  8. CAPOTEN [Concomitant]
     Indication: PRODUCT USED FOR UNKNOWN INDICATION
     Route: 065
  9. VYTORIN [Concomitant]
     Indication: PRODUCT USED FOR UNKNOWN INDICATION
     Route: 065
  10. HEPARIN SODIUM 5,000 UNITS IN DEXTROSE 5% [Suspect]
     Indication: DEEP VEIN THROMBOSIS
     Route: 042
     Dates: start: 20080122, end: 20080126
  11. HEPARIN SODIUM INJECTION [Suspect]
     Route: 058
     Dates: start: 20110312, end: 20110331
  12. COUMADIN [Suspect]
     Route: 065
     Dates: start: 20080126
  13. HYDROCORTISONE [Concomitant]
     Route: 065
  14. HEPARIN SODIUM INJECTION [Suspect]
     Route: 040
     Dates: start: 20080122, end: 20080122
  15. COUMADIN [Suspect]
     Indication: DEEP VEIN THROMBOSIS
     Route: 048
     Dates: start: 20080122
  16. HEPARIN SODIUM INJECTION [Suspect]
     Route: 058
     Dates: start: 20110216, end: 20110218
  17. HEPARIN SODIUM INJECTION [Suspect]
     Route: 065
  18. REGULAR INSULIN [Concomitant]
     Indication: PRODUCT USED FOR UNKNOWN INDICATION
     Route: 065
  19. PREDNISONE [Concomitant]
     Indication: PRODUCT USED FOR UNKNOWN INDICATION
     Route: 065

REACTIONS (15)
  - INFECTION [None]
  - BLOOD PRESSURE IMMEASURABLE [None]
  - STAPHYLOCOCCAL INFECTION [None]
  - BODY TEMPERATURE INCREASED [None]
  - CONSTIPATION [None]
  - TOXICITY TO VARIOUS AGENTS [None]
  - CULTURE URINE POSITIVE [None]
  - URINE ANALYSIS ABNORMAL [None]
  - MUSCULAR WEAKNESS [None]
  - MYOPATHY [None]
  - PARAPLEGIA [None]
  - HYPERGLYCAEMIA [None]
  - DYSPNOEA [None]
  - NEUROPATHY PERIPHERAL [None]
  - RASH [None]
